FAERS Safety Report 10688753 (Version 2)
Quarter: 2015Q1

REPORT INFORMATION
  Report Type: Report from Study
  Country: US (occurrence: US)
  Receive Date: 20150103
  Receipt Date: 20150127
  Transmission Date: 20150720
  Serious: Yes (Hospitalization, Other)
  Sender: FDA-Public Use
  Company Number: US-ASTRAZENECA-2014SE84925

PATIENT
  Age: 64 Year
  Sex: Male
  Weight: 76.2 kg

DRUGS (4)
  1. PLAVIX [Concomitant]
     Active Substance: CLOPIDOGREL BISULFATE
     Route: 048
  2. METFORMIN [Concomitant]
     Active Substance: METFORMIN HYDROCHLORIDE
     Indication: DIABETES MELLITUS
     Route: 048
     Dates: start: 2011
  3. BABY ASPIRIN [Concomitant]
     Active Substance: ASPIRIN
     Route: 048
  4. CRESTOR [Suspect]
     Active Substance: ROSUVASTATIN CALCIUM
     Indication: BLOOD CHOLESTEROL
     Dosage: 5 MG OR 10 MG ,DAILY
     Route: 048
     Dates: start: 2010

REACTIONS (6)
  - Fall [Unknown]
  - Facial bones fracture [Unknown]
  - Abnormal dreams [Unknown]
  - Traumatic fracture [Unknown]
  - Concussion [Unknown]
  - Hernia [Unknown]

NARRATIVE: CASE EVENT DATE: 2012
